FAERS Safety Report 23164601 (Version 2)
Quarter: 2023Q4

REPORT INFORMATION
  Report Type: Spontaneous
  Country: GB (occurrence: GB)
  Receive Date: 20231109
  Receipt Date: 20231122
  Transmission Date: 20240110
  Serious: Yes (Hospitalization)
  Sender: FDA-Public Use
  Company Number: GB-TEVA-2023-GB-2942760

PATIENT
  Age: 65 Year
  Sex: Female

DRUGS (6)
  1. ATORVASTATIN [Suspect]
     Active Substance: ATORVASTATIN
     Indication: Acute myocardial infarction
     Dosage: 80 MILLIGRAM DAILY;
     Route: 065
  2. ASPIRIN [Concomitant]
     Active Substance: ASPIRIN
     Indication: Acute myocardial infarction
     Dosage: 75 MILLIGRAM DAILY;
     Route: 065
  3. PRASUGREL [Concomitant]
     Active Substance: PRASUGREL
     Indication: Acute myocardial infarction
     Dosage: 10 MILLIGRAM DAILY;
     Route: 065
  4. RAMIPRIL [Concomitant]
     Active Substance: RAMIPRIL
     Indication: Acute myocardial infarction
     Dosage: 1.25 MILLIGRAM DAILY;
     Route: 065
  5. BISOPROLOL [Concomitant]
     Active Substance: BISOPROLOL\BISOPROLOL FUMARATE
     Indication: Acute myocardial infarction
     Dosage: 1.25 MILLIGRAM DAILY;
     Route: 065
  6. NITROGLYCERIN [Concomitant]
     Active Substance: NITROGLYCERIN
     Indication: Acute myocardial infarction
     Route: 065

REACTIONS (1)
  - Drug-induced liver injury [Recovered/Resolved]
